FAERS Safety Report 7433299-8 (Version None)
Quarter: 2011Q2

REPORT INFORMATION
  Report Type: 
  Country: None (occurrence: None)
  Receive Date: 20110422
  Receipt Date: 20110413
  Transmission Date: 20111010
  Serious: Yes (Hospitalization)
  Sender: FDA-Public Use
  Company Number: US-ELI_LILLY_AND_COMPANY-US201010005578

PATIENT
  Sex: Female

DRUGS (14)
  1. PROPRANOLOL [Concomitant]
     Dosage: 10 MG, DAILY (1/D)
  2. NIASPAN [Concomitant]
     Dosage: 1000 MG, EACH EVENING
  3. ASPIRIN [Concomitant]
     Dosage: UNK, DAILY (1/D)
  4. STOOL SOFTENER [Concomitant]
     Dosage: UNK, DAILY (1/D)
     Dates: start: 20100101
  5. PLAVIX [Concomitant]
     Dosage: 75 MG, QOD
     Dates: start: 20050101
  6. FORTEO [Suspect]
     Dosage: 20 UG, DAILY (1/D)
     Route: 065
  7. PROTONIX [Concomitant]
     Dosage: 40 MG, DAILY (1/D)
  8. HYDROCHLOROTHIAZIDE [Concomitant]
     Dosage: 12 MG, DAILY (1/D)
     Dates: start: 20100601
  9. CENTRUM SILVER [Concomitant]
     Dosage: UNK, DAILY (1/D)
  10. FORTEO [Suspect]
     Dosage: 20 UG, DAILY (1/D)
  11. FORTEO [Suspect]
     Indication: OSTEOPOROSIS
     Dosage: 20 UG, DAILY (1/D)
     Dates: start: 20100926
  12. ZETIA [Concomitant]
     Dosage: 10 MG, DAILY
  13. TRAMADOL HCL [Concomitant]
     Dosage: 100 MG, 2/D
  14. CALCIUM WITH VITAMIN D [Concomitant]
     Dosage: 600 MG, 2/D

REACTIONS (10)
  - BONE PAIN [None]
  - ASTHENIA [None]
  - PAIN [None]
  - BASEDOW'S DISEASE [None]
  - SHOULDER ARTHROPLASTY [None]
  - PRURITUS [None]
  - ARTHRALGIA [None]
  - INJECTION SITE PAIN [None]
  - MUSCLE SPASMS [None]
  - DIPLOPIA [None]
